FAERS Safety Report 8467878-6 (Version None)
Quarter: 2012Q2

REPORT INFORMATION
  Report Type: 
  Country: None (occurrence: None)
  Receive Date: 20120626
  Receipt Date: 20120622
  Transmission Date: 20120825
  Serious: Yes (Hospitalization)
  Sender: FDA-Public Use
  Company Number: FR-BAYER-2012-062823

PATIENT
  Age: 24 Year
  Sex: Female

DRUGS (1)
  1. UNIFLOX [Suspect]
     Dosage: 1 DF, ONCE
     Route: 048
     Dates: start: 20120210, end: 20120210

REACTIONS (1)
  - TYPE I HYPERSENSITIVITY [None]
